FAERS Safety Report 20791749 (Version 1)
Quarter: 2022Q2

REPORT INFORMATION
  Report Type: Spontaneous
  Country: US (occurrence: None)
  Receive Date: 20220505
  Receipt Date: 20220505
  Transmission Date: 20220721
  Serious: No
  Sender: FDA-Public Use
  Company Number: None

PATIENT
  Sex: Male

DRUGS (1)
  1. OTEZLA [Suspect]
     Active Substance: APREMILAST
     Indication: Psoriatic arthropathy
     Dosage: 30MG TWICE DAILY ORAL?
     Route: 048
     Dates: start: 20220301

REACTIONS (4)
  - Therapy non-responder [None]
  - Pain [None]
  - Fatigue [None]
  - Dizziness [None]
